FAERS Safety Report 7771923-0 (Version None)
Quarter: 2011Q3

REPORT INFORMATION
  Report Type: 
  Country: None (occurrence: None)
  Receive Date: 20110922
  Receipt Date: 20110215
  Transmission Date: 20111222
  Serious: Yes (Hospitalization, Other)
  Sender: FDA-Public Use
  Company Number: US-ASTRAZENECA-2010SE45958

PATIENT
  Age: 51 Year
  Sex: Male

DRUGS (4)
  1. SEROQUEL [Suspect]
     Route: 048
  2. SEROQUEL [Suspect]
     Indication: SLEEP DISORDER
     Route: 048
  3. SEROQUEL [Suspect]
     Indication: TACHYPHRENIA
     Route: 048
  4. SEROQUEL [Suspect]
     Route: 048

REACTIONS (5)
  - DRUG DOSE OMISSION [None]
  - INCORRECT DOSE ADMINISTERED [None]
  - SUICIDE ATTEMPT [None]
  - SUICIDAL IDEATION [None]
  - BIPOLAR I DISORDER [None]
